FAERS Safety Report 4574565-3 (Version None)
Quarter: 2005Q1

REPORT INFORMATION
  Report Type: 
  Country: None (occurrence: None)
  Receive Date: 20050208
  Receipt Date: 20040109
  Transmission Date: 20050727
  Serious: No
  Sender: FDA-Public Use
  Company Number: US-GLAXOSMITHKLINE-A0493730A

PATIENT
  Sex: Female

DRUGS (7)
  1. PAXIL [Suspect]
     Indication: ILL-DEFINED DISORDER
     Dosage: 40MG PER DAY
     Route: 048
     Dates: start: 19980101
  2. TRAZODONE [Concomitant]
  3. DEPAKOTE [Concomitant]
  4. LAMICTAL [Concomitant]
     Indication: DEPRESSION
     Dates: start: 19970101
  5. WELLBUTRIN [Concomitant]
  6. NEURONTIN [Concomitant]
  7. ZYPREXA [Concomitant]

REACTIONS (7)
  - ANXIETY [None]
  - CRYING [None]
  - DECREASED APPETITE [None]
  - DRUG WITHDRAWAL SYNDROME [None]
  - FEELING ABNORMAL [None]
  - INSOMNIA [None]
  - VISUAL DISTURBANCE [None]
